FAERS Safety Report 7536420 (Version 4)
Quarter: 2014Q1

REPORT INFORMATION
  Report Type: Spontaneous
  Country: US (occurrence: US)
  Receive Date: 20100811
  Receipt Date: 20140203
  Transmission Date: 20141002
  Serious: Yes (Other)
  Sender: FDA-Public Use
  Company Number: US-JNJFOC-20100303582

PATIENT
  Age: 84 Year
  Sex: Female
  Weight: 62.6 kg

DRUGS (19)
  1. SANDOZ FENTANYL TRANSDERMAL SYSTEM [Suspect]
     Indication: BACK PAIN
     Route: 062
     Dates: start: 2008
  2. SANDOZ FENTANYL TRANSDERMAL SYSTEM [Suspect]
     Indication: BACK PAIN
     Route: 062
     Dates: end: 2010
  3. SANDOZ FENTANYL TRANSDERMAL SYSTEM [Suspect]
     Indication: BACK PAIN
     Route: 062
     Dates: start: 2005, end: 2008
  4. SANDOZ FENTANYL TRANSDERMAL SYSTEM [Suspect]
     Indication: BACK PAIN
     Route: 062
     Dates: start: 2008, end: 20100716
  5. SANDOZ FENTANYL TRANSDERMAL SYSTEM [Suspect]
     Indication: SPINAL PAIN
     Route: 062
     Dates: start: 2005, end: 2008
  6. SANDOZ FENTANYL TRANSDERMAL SYSTEM [Suspect]
     Indication: SPINAL PAIN
     Route: 062
     Dates: start: 2008, end: 20100716
  7. SANDOZ FENTANYL TRANSDERMAL SYSTEM [Suspect]
     Indication: SPINAL PAIN
     Route: 062
     Dates: end: 2010
  8. SANDOZ FENTANYL TRANSDERMAL SYSTEM [Suspect]
     Indication: SPINAL PAIN
     Route: 062
     Dates: start: 2008
  9. SANDOZ FENTANYL TRANSDERMAL SYSTEM [Suspect]
     Indication: PAIN
     Route: 062
     Dates: start: 2010
  10. SANDOZ FENTANYL TRANSDERMAL SYSTEM [Suspect]
     Indication: PAIN
     Route: 062
     Dates: start: 20100716
  11. SANDOZ FENTANYL TRANSDERMAL SYSTEM [Suspect]
     Indication: PAIN
     Route: 062
     Dates: start: 20100731
  12. SANDOZ FENTANYL TRANSDERMAL SYSTEM [Suspect]
     Indication: BACK PAIN
     Route: 062
     Dates: start: 2010
  13. SANDOZ FENTANYL TRANSDERMAL SYSTEM [Suspect]
     Indication: BACK PAIN
     Route: 062
     Dates: start: 20100731
  14. SANDOZ FENTANYL TRANSDERMAL SYSTEM [Suspect]
     Indication: BACK PAIN
     Route: 062
     Dates: start: 20100716
  15. FENTANYL TRANSDERMAL SYSTEM [Suspect]
     Indication: PAIN
     Route: 062
     Dates: start: 2004
  16. PREVACID [Concomitant]
     Indication: GASTROOESOPHAGEAL REFLUX DISEASE
     Route: 048
     Dates: start: 2003
  17. GABAPENTIN [Concomitant]
     Indication: NEUROPATHY PERIPHERAL
     Route: 048
     Dates: start: 2004
  18. LEVOXYL [Concomitant]
     Indication: THYROID DISORDER
     Route: 048
  19. TEMAZEPAM [Concomitant]
     Indication: SLEEP DISORDER THERAPY
     Route: 048

REACTIONS (8)
  - Hypothyroidism [Not Recovered/Not Resolved]
  - Depression [Not Recovered/Not Resolved]
  - Drug effect decreased [Not Recovered/Not Resolved]
  - Insomnia [Not Recovered/Not Resolved]
  - Pain [Recovered/Resolved]
  - Product quality issue [Unknown]
  - Product quality issue [Unknown]
  - Product adhesion issue [Unknown]
